FAERS Safety Report 17601600 (Version 1)
Quarter: 2020Q1

REPORT INFORMATION
  Report Type: Spontaneous
  Country: US (occurrence: US)
  Receive Date: 20200330
  Receipt Date: 20200330
  Transmission Date: 20200409
  Serious: No
  Sender: FDA-Public Use
  Company Number: US-PRINSTON PHARMACEUTICAL INC.-2019PRN00444

PATIENT
  Age: 79 Year
  Sex: Female
  Weight: 79.37 kg

DRUGS (9)
  1. FUROSEMIDE. [Suspect]
     Active Substance: FUROSEMIDE
     Indication: PERIPHERAL SWELLING
     Dosage: 20 MG, 1X/DAY
     Route: 048
     Dates: start: 20190406
  2. UNKNOWN CANCER MEDICATION [Concomitant]
     Dosage: 25 MG
  3. UNKNOWN CANCER MEDICATION [Concomitant]
     Dosage: 10 MG
  4. VITAMIN B12 [Concomitant]
     Active Substance: CYANOCOBALAMIN
  5. VITAMIN B6 [Concomitant]
     Active Substance: PYRIDOXINE HYDROCHLORIDE
  6. UNKNOWN CHEMOTHERAPY SHOT [Concomitant]
     Dosage: UNK, 1X/WEEK FOR 3 WEEKS OF A MONTH
  7. VELCADE [Concomitant]
     Active Substance: BORTEZOMIB
     Dosage: UNK, 1X/DAY FOR 3 WEEKS
  8. UNSPECIFIED MEDICATION FOR SHINGLES TO AVOID GETTING A COLD [Concomitant]
  9. VITAMIN D3 [Concomitant]
     Active Substance: CHOLECALCIFEROL

REACTIONS (6)
  - Abdominal pain upper [Not Recovered/Not Resolved]
  - Weight decreased [Unknown]
  - Flank pain [Not Recovered/Not Resolved]
  - Pain in extremity [Not Recovered/Not Resolved]
  - Product dose omission [Unknown]
  - Back pain [Not Recovered/Not Resolved]

NARRATIVE: CASE EVENT DATE: 201904
